FAERS Safety Report 21873997 (Version 1)
Quarter: 2023Q1

REPORT INFORMATION
  Report Type: Spontaneous
  Country: US (occurrence: US)
  Receive Date: 20230117
  Receipt Date: 20230117
  Transmission Date: 20230417
  Serious: No
  Sender: FDA-Public Use
  Company Number: US-NOVOPROD-965300

PATIENT
  Sex: Female

DRUGS (2)
  1. RYBELSUS [Suspect]
     Active Substance: SEMAGLUTIDE
     Dosage: 6MG
  2. RYBELSUS [Suspect]
     Active Substance: SEMAGLUTIDE
     Indication: Type 2 diabetes mellitus
     Dosage: 3MG

REACTIONS (4)
  - Blood potassium increased [Unknown]
  - Blood calcium increased [Unknown]
  - Weight decreased [Unknown]
  - Abdominal pain upper [Unknown]
